FAERS Safety Report 5527504-2 (Version None)
Quarter: 2007Q4

REPORT INFORMATION
  Report Type: 
  Country: None (occurrence: None)
  Receive Date: 20071128
  Receipt Date: 20071126
  Transmission Date: 20080405
  Serious: Yes (Other)
  Sender: FDA-Public Use
  Company Number: LB-BRISTOL-MYERS SQUIBB COMPANY-13993399

PATIENT
  Age: 33 Year
  Sex: Male

DRUGS (3)
  1. CISPLATIN [Suspect]
     Indication: TESTICULAR GERM CELL CANCER
  2. ETOPOSIDE [Suspect]
     Indication: TESTICULAR GERM CELL CANCER
  3. METHYLPREDNISOLONE [Suspect]
     Indication: TESTICULAR GERM CELL CANCER

REACTIONS (1)
  - CEREBRAL THROMBOSIS [None]
